FAERS Safety Report 5032714-7 (Version None)
Quarter: 2006Q2

REPORT INFORMATION
  Report Type: 
  Country: None (occurrence: None)
  Receive Date: 20060620
  Receipt Date: 20060620
  Transmission Date: 20061013
  Serious: Yes (Life-Threatening)
  Sender: FDA-Public Use
  Company Number: None

PATIENT

DRUGS (4)
  1. DILANTIN [Suspect]
     Indication: EPILEPSY
     Dosage: MOURING AND NIGHT
     Dates: start: 20060424, end: 20060522
  2. MYSOLINE [Suspect]
     Indication: EPILEPSY
     Dosage: MOURING AND NIGHT
     Dates: start: 20060424, end: 20060522
  3. TEGRETOL [Suspect]
     Dosage: MOURNING AND NIGHT
     Dates: start: 20060331, end: 20060522
  4. MYSOLINE [Suspect]
     Dosage: MOURNING AND NIGHT
     Dates: start: 20060331, end: 20060522

REACTIONS (7)
  - CEREBROVASCULAR ACCIDENT [None]
  - DIPLOPIA [None]
  - FEELING ABNORMAL [None]
  - MALAISE [None]
  - PETIT MAL EPILEPSY [None]
  - PHARMACEUTICAL PRODUCT COMPLAINT [None]
  - POOR QUALITY DRUG ADMINISTERED [None]
